FAERS Safety Report 23717929 (Version 1)
Quarter: 2024Q2

REPORT INFORMATION
  Report Type: Spontaneous
  Country: US (occurrence: US)
  Receive Date: 20240408
  Receipt Date: 20240408
  Transmission Date: 20240716
  Serious: No
  Sender: FDA-Public Use
  Company Number: US-GALDERMA-US2024004689

PATIENT

DRUGS (6)
  1. PROACTIV MD ADAPALENE ACNE TREATMENT [Suspect]
     Active Substance: ADAPALENE
     Indication: Ingrown hair
     Dosage: 1 DOSAGE FORM, QD
     Route: 061
     Dates: start: 202310, end: 2024
  2. Proactiv MD Ultra Gentle Cleanser [Concomitant]
     Indication: Ingrown hair
     Dosage: 1 DOSAGE FORM, BID
     Route: 061
     Dates: start: 202310, end: 2024
  3. Proactiv MD Ultra Hydrating Moisturizer [Concomitant]
     Indication: Ingrown hair
     Dosage: 1 DOSAGE FORM, BID
     Route: 061
     Dates: start: 202310, end: 2024
  4. COSMETICS [Concomitant]
     Active Substance: COSMETICS
     Indication: Ingrown hair
     Dosage: 1 DOSAGE FORM, BID
     Route: 061
     Dates: start: 202310, end: 2024
  5. COSMETICS [Concomitant]
     Active Substance: COSMETICS
     Indication: Ingrown hair
     Dosage: 1 DOSAGE FORM, BID
     Route: 061
     Dates: start: 202310, end: 2024
  6. Proactiv Zits Happen Patches [Concomitant]
     Indication: Ingrown hair
     Dosage: 1 DOSAGE FORM, BID
     Route: 061
     Dates: start: 202310, end: 2024

REACTIONS (7)
  - Skin irritation [Not Recovered/Not Resolved]
  - Blister [Not Recovered/Not Resolved]
  - Rash [Not Recovered/Not Resolved]
  - Condition aggravated [Not Recovered/Not Resolved]
  - Pain of skin [Not Recovered/Not Resolved]
  - Drug ineffective [Unknown]
  - Product use in unapproved indication [Recovered/Resolved]

NARRATIVE: CASE EVENT DATE: 20230101
